FAERS Safety Report 11038577 (Version 1)
Quarter: 2015Q2

REPORT INFORMATION
  Report Type: Spontaneous
  Country: US (occurrence: None)
  Receive Date: 20150415
  Receipt Date: 20150415
  Transmission Date: 20150821
  Serious: No
  Sender: FDA-Public Use
  Company Number: None

PATIENT
  Age: 45 Year
  Sex: Female

DRUGS (1)
  1. ORENCIA [Suspect]
     Active Substance: ABATACEPT
     Indication: RHEUMATOID ARTHRITIS
     Dosage: INJECT 1 PFS
     Route: 058

REACTIONS (3)
  - Erythema [None]
  - Swelling [None]
  - Injection site bruising [None]

NARRATIVE: CASE EVENT DATE: 20150302
